FAERS Safety Report 14153277 (Version 2)
Quarter: 2017Q4

REPORT INFORMATION
  Report Type: Spontaneous
  Country: AU (occurrence: AU)
  Receive Date: 20171102
  Receipt Date: 20171109
  Transmission Date: 20180321
  Serious: Yes (Hospitalization, Other)
  Sender: FDA-Public Use
  Company Number: AU-IGSA-SR10005440

PATIENT
  Age: 53 Year
  Sex: Male
  Weight: 85 kg

DRUGS (1)
  1. FLEBOGAMMA DIF [Suspect]
     Active Substance: HUMAN IMMUNOGLOBULIN G
     Indication: LIMBIC ENCEPHALITIS
     Dosage: 120 G, PER CYCLE
     Route: 042
     Dates: start: 20171016, end: 20171019

REACTIONS (1)
  - Neutropenia [Recovered/Resolved]

NARRATIVE: CASE EVENT DATE: 20171019
